FAERS Safety Report 4330707-6 (Version None)
Quarter: 2004Q2

REPORT INFORMATION
  Report Type: 
  Country: None (occurrence: None)
  Receive Date: 20040402
  Receipt Date: 20020617
  Transmission Date: 20050107
  Serious: Yes (Hospitalization, Other)
  Sender: FDA-Public Use
  Company Number: US-BRISTOL-MYERS SQUIBB COMPANY-11911617

PATIENT
  Age: 48 Year
  Sex: Female

DRUGS (7)
  1. NEORAL [Suspect]
     Dosage: -OPEN-LABEL
     Route: 048
     Dates: start: 20020511
  2. CELLCEPT [Suspect]
     Dates: start: 20020511, end: 20020607
  3. PREDNISONE [Suspect]
     Dates: start: 20020512
  4. METHYLPREDNISOLONE SODIUM SUCCINATE [Suspect]
  5. SIMULECT [Suspect]
  6. BACTRIM [Suspect]
     Dates: start: 20020511, end: 20020607
  7. CYTOVENE [Suspect]
     Dates: start: 20020511, end: 20020530

REACTIONS (11)
  - CHOLELITHIASIS [None]
  - FLANK PAIN [None]
  - GRAFT DYSFUNCTION [None]
  - NAUSEA [None]
  - NEPHROPATHY [None]
  - PANCYTOPENIA [None]
  - PYREXIA [None]
  - RENAL TUBULAR NECROSIS [None]
  - THROMBOCYTOPENIA [None]
  - URINARY TRACT INFECTION [None]
  - VOMITING [None]
